FAERS Safety Report 6543729-1 (Version None)
Quarter: 2010Q1

REPORT INFORMATION
  Report Type: 
  Country: None (occurrence: None)
  Receive Date: 20100120
  Receipt Date: 20100111
  Transmission Date: 20100710
  Serious: Yes (Hospitalization)
  Sender: FDA-Public Use
  Company Number: FR-ASTRAZENECA-2010SE01307

PATIENT
  Age: 11830 Day
  Sex: Male

DRUGS (2)
  1. MERONEM [Suspect]
     Indication: OSTEITIS
     Route: 042
     Dates: start: 20090727
  2. TYGACIL [Suspect]
     Indication: OSTEITIS
     Route: 042
     Dates: start: 20090727

REACTIONS (1)
  - THROMBOPHLEBITIS [None]
